FAERS Safety Report 5548753-3 (Version None)
Quarter: 2007Q4

REPORT INFORMATION
  Report Type: 
  Country: None (occurrence: None)
  Receive Date: 20071206
  Receipt Date: 20071123
  Transmission Date: 20080405
  Serious: Yes (Other)
  Sender: FDA-Public Use
  Company Number: 2007S1012205

PATIENT
  Age: 20 Month
  Sex: Male
  Weight: 12 kg

DRUGS (5)
  1. VANCOMYCINE MERCK (VANCOMYCIN HYDROCHLORIDE) [Suspect]
     Indication: MENINGITIS
     Dosage: INTRAVENOUS
     Route: 042
     Dates: start: 20071023, end: 20071030
  2. GARDENAL /00023201/ (PHENOBARBITAL) [Suspect]
     Dosage: INTRAVENOUS
     Route: 042
     Dates: start: 20071023, end: 20071105
  3. ACETAMINOPHEN [Suspect]
     Dosage: INTRAVENOUS
     Route: 042
     Dates: start: 20071023, end: 20071106
  4. VALIUM [Suspect]
     Dosage: OROPHARINGEAL
     Route: 049
     Dates: start: 20071023, end: 20071106
  5. CLAFORAN [Suspect]
     Dosage: INTRAVENOUS
     Route: 042
     Dates: start: 20071023, end: 20071030

REACTIONS (7)
  - DERMATITIS BULLOUS [None]
  - OEDEMA GENITAL [None]
  - ORAL DISORDER [None]
  - RASH GENERALISED [None]
  - RASH MACULO-PAPULAR [None]
  - SKIN EXFOLIATION [None]
  - TOXIC SKIN ERUPTION [None]
